FAERS Safety Report 21757781 (Version 1)
Quarter: 2022Q4

REPORT INFORMATION
  Report Type: Spontaneous
  Country: US (occurrence: None)
  Receive Date: 20221221
  Receipt Date: 20221221
  Transmission Date: 20230113
  Serious: No
  Sender: FDA-Public Use
  Company Number: US-ROCHE-3123259

PATIENT

DRUGS (2)
  1. ACTIVASE [Suspect]
     Active Substance: ALTEPLASE
     Indication: Pulmonary embolism
     Dosage: ONGOING: NO
     Route: 042
     Dates: start: 20220619
  2. ACTIVASE [Suspect]
     Active Substance: ALTEPLASE

REACTIONS (3)
  - Treatment delayed [Unknown]
  - Product quality issue [Unknown]
  - No adverse event [Unknown]

NARRATIVE: CASE EVENT DATE: 20220619
